FAERS Safety Report 7184407-8 (Version None)
Quarter: 2010Q4

REPORT INFORMATION
  Report Type: 
  Country: None (occurrence: None)
  Receive Date: 20101222
  Receipt Date: 20091116
  Transmission Date: 20110411
  Serious: Yes (Hospitalization)
  Sender: FDA-Public Use
  Company Number: US-PFIZER INC-2009298936

PATIENT
  Sex: Female
  Weight: 76.87 kg

DRUGS (14)
  1. DIFLUCAN [Suspect]
     Dosage: UNK
  2. ZYLOPRIM [Suspect]
     Indication: PRODUCT USED FOR UNKNOWN INDICATION
     Dosage: UNK
     Route: 065
     Dates: start: 20090101
  3. BORTEZOMIB [Suspect]
     Indication: MULTIPLE MYELOMA
     Dosage: UNK
     Route: 042
     Dates: start: 20090126, end: 20090126
  4. THALIDOMIDE [Suspect]
     Indication: MULTIPLE MYELOMA
     Dosage: 200 MG,DAILY
     Route: 048
     Dates: start: 20090101, end: 20090101
  5. THALIDOMIDE [Suspect]
     Dosage: 100 MG, DAILY
     Route: 048
     Dates: start: 20090119, end: 20090119
  6. DEXAMETHASONE [Suspect]
     Indication: MULTIPLE MYELOMA
     Dosage: UNK
     Route: 048
     Dates: start: 20081201
  7. ZOLPIDEM TARTRATE [Suspect]
     Dosage: UNK
  8. CATAPRES [Concomitant]
  9. SYNTHROID [Concomitant]
  10. LOPRESSOR [Concomitant]
  11. ASCORBIC ACID [Concomitant]
  12. PRILOSEC [Concomitant]
  13. NORVASC [Concomitant]
  14. TUMS [Concomitant]

REACTIONS (1)
  - TOXIC EPIDERMAL NECROLYSIS [None]
